FAERS Safety Report 12393480 (Version 1)
Quarter: 2016Q2

REPORT INFORMATION
  Report Type: Spontaneous
  Country: HU (occurrence: HU)
  Receive Date: 20160523
  Receipt Date: 20160523
  Transmission Date: 20160815
  Serious: Yes (Other)
  Sender: FDA-Public Use
  Company Number: HU-ACTAVIS-2016-09886

PATIENT
  Age: 67 Year
  Sex: Male

DRUGS (4)
  1. KREON                              /00014701/ [Concomitant]
     Active Substance: PANCRELIPASE
     Indication: PRODUCT USED FOR UNKNOWN INDICATION
     Dosage: UNK, BID
     Route: 065
  2. LEVOXA [Suspect]
     Active Substance: LEVOFLOXACIN
     Indication: BRONCHITIS
     Dosage: 500 MG, DAILY
     Route: 048
     Dates: start: 20160504, end: 20160507
  3. PORTIRON [Concomitant]
     Indication: PRODUCT USED FOR UNKNOWN INDICATION
     Dosage: 100 MG, QAM
     Route: 065
  4. DEGASIN [Concomitant]
     Indication: PRODUCT USED FOR UNKNOWN INDICATION
     Dosage: UNK, QPM
     Route: 065

REACTIONS (1)
  - Pain in extremity [Recovering/Resolving]

NARRATIVE: CASE EVENT DATE: 20160506
